FAERS Safety Report 24664114 (Version 1)
Quarter: 2024Q4

REPORT INFORMATION
  Report Type: Spontaneous
  Country: CN (occurrence: CN)
  Receive Date: 20241126
  Receipt Date: 20241126
  Transmission Date: 20250115
  Serious: No
  Sender: ROCHE
  Company Number: CN-ROCHE-10000138144

PATIENT
  Sex: Female

DRUGS (1)
  1. OSELTAMIVIR [Suspect]
     Active Substance: OSELTAMIVIR
     Indication: Product used for unknown indication
     Route: 065

REACTIONS (4)
  - Vomiting [Unknown]
  - Pain [Unknown]
  - Dysgeusia [Unknown]
  - Maternal exposure during pregnancy [Unknown]
